FAERS Safety Report 15313794 (Version 2)
Quarter: 2018Q3

REPORT INFORMATION
  Report Type: Spontaneous
  Country: DE (occurrence: DE)
  Receive Date: 20180824
  Receipt Date: 20180906
  Transmission Date: 20181010
  Serious: Yes (Death, Hospitalization, Other)
  Sender: FDA-Public Use
  Company Number: DE-BRISTOL-MYERS SQUIBB COMPANY-BMS-2018-079304

PATIENT
  Age: 68 Year
  Sex: Male

DRUGS (1)
  1. NIVOLUMAB [Suspect]
     Active Substance: NIVOLUMAB
     Indication: SQUAMOUS CELL CARCINOMA OF THE TONGUE
     Dosage: 3 MG/KG, Q2WK
     Route: 065
     Dates: start: 201711, end: 201803

REACTIONS (8)
  - Pneumonia [Unknown]
  - Duodenal ulcer [Unknown]
  - Escherichia infection [Unknown]
  - Herpes zoster [Unknown]
  - Respiratory failure [Unknown]
  - Death [Fatal]
  - Pneumocystis jirovecii pneumonia [Unknown]
  - Interstitial lung disease [Unknown]

NARRATIVE: CASE EVENT DATE: 201712
